FAERS Safety Report 13924854 (Version 1)
Quarter: 2017Q3

REPORT INFORMATION
  Report Type: Spontaneous
  Country: JP (occurrence: JP)
  Receive Date: 20170831
  Receipt Date: 20170831
  Transmission Date: 20171127
  Serious: Yes (Hospitalization)
  Sender: FDA-Public Use
  Company Number: JP-TEVA-802362ROM

PATIENT
  Age: 74 Year
  Sex: Female
  Weight: 52 kg

DRUGS (7)
  1. PITAVASTATIN CALCIUM [Concomitant]
     Active Substance: PITAVASTATIN CALCIUM
  2. ETIZOLAM [Concomitant]
     Active Substance: ETIZOLAM
     Dates: start: 20160701
  3. RINDERON A [Concomitant]
     Active Substance: BETAMETHASONE SODIUM PHOSPHATE\NEOMYCIN SULFATE
  4. BENIDIPINE HYDROCHLORIDE [Concomitant]
     Active Substance: BENIDIPINE HYDROCHLORIDE
  5. CRAVIT [Concomitant]
     Active Substance: LEVOFLOXACIN
  6. MAINTATE [Concomitant]
     Active Substance: BISOPROLOL FUMARATE
  7. BENET [Suspect]
     Active Substance: RISEDRONATE SODIUM
     Indication: OSTEOPOROSIS
     Route: 048
     Dates: start: 20160701, end: 20160701

REACTIONS (4)
  - White blood cell count increased [Recovering/Resolving]
  - Pyrexia [Recovering/Resolving]
  - Back pain [Recovering/Resolving]
  - C-reactive protein increased [Recovering/Resolving]

NARRATIVE: CASE EVENT DATE: 20160701
